FAERS Safety Report 24052158 (Version 2)
Quarter: 2024Q3

REPORT INFORMATION
  Report Type: Report from Study
  Country: ES (occurrence: ES)
  Receive Date: 20240704
  Receipt Date: 20240802
  Transmission Date: 20241016
  Serious: Yes (Hospitalization)
  Sender: PFIZER
  Company Number: ES-ROCHE-10000004392

PATIENT
  Age: 62 Year
  Sex: Male
  Weight: 68.5 kg

DRUGS (3)
  1. CISPLATIN [Suspect]
     Active Substance: CISPLATIN
     Dosage: 33 MG, EVERY 3 WEEKS (ON 03MAR2023, HE RECEIVED MOST RECENT DOSE PRIOR TO AE/SAE ONSET)
     Route: 042
     Dates: start: 20230303, end: 20240602
  2. GEMCITABINE HYDROCHLORIDE [Suspect]
     Active Substance: GEMCITABINE HYDROCHLORIDE
     Dosage: 1800 MG, EVERY 3 WEEKS (ON 03MAR2023, HE RECEIVED MOST RECENT DOSE PRIOR TO AE/SAE ONSET)
     Route: 042
     Dates: start: 20230303, end: 20230602
  3. DURVALUMAB [Suspect]
     Active Substance: DURVALUMAB
     Dosage: 1500 MG, EVERY 3 WEEKS (ON 03MAR2023, HE RECEIVED MOST RECENT DOSE OF PRIOR TO AE/SAE ONSET)
     Route: 042
     Dates: start: 20230303, end: 20230511

REACTIONS (2)
  - Acute kidney injury [Recovered/Resolved]
  - Thrombocytopenia [Recovered/Resolved]

NARRATIVE: CASE EVENT DATE: 20230313
